FAERS Safety Report 6269764-9 (Version None)
Quarter: 2009Q3

REPORT INFORMATION
  Report Type: 
  Country: None (occurrence: None)
  Receive Date: 20090714
  Receipt Date: 20090629
  Transmission Date: 20100115
  Serious: Yes (Hospitalization)
  Sender: FDA-Public Use
  Company Number: 8047400

PATIENT
  Age: 51 Year
  Sex: Male
  Weight: 77.2 kg

DRUGS (3)
  1. CIMZIA [Suspect]
     Indication: CROHN'S DISEASE
     Dosage: 400 MG 1/2W SC
     Route: 058
     Dates: start: 20090509
  2. PENTASA [Concomitant]
  3. ENTOCORT EC [Concomitant]

REACTIONS (5)
  - CONDITION AGGRAVATED [None]
  - CROHN'S DISEASE [None]
  - FATIGUE [None]
  - HAEMATOCHEZIA [None]
  - MUCOUS STOOLS [None]
